FAERS Safety Report 10048877 (Version 2)
Quarter: 2014Q2

REPORT INFORMATION
  Report Type: Spontaneous
  Country: US (occurrence: US)
  Receive Date: 20140331
  Receipt Date: 20140522
  Transmission Date: 20141212
  Serious: No
  Sender: FDA-Public Use
  Company Number: US-PFIZER INC-2014086423

PATIENT
  Sex: 0

DRUGS (1)
  1. PREMARIN [Suspect]
     Dosage: 1.25 MG, DAILY

REACTIONS (2)
  - Hot flush [Unknown]
  - Mood swings [Unknown]
